FAERS Safety Report 8103363-9 (Version None)
Quarter: 2012Q1

REPORT INFORMATION
  Report Type: 
  Country: None (occurrence: None)
  Receive Date: 20120201
  Receipt Date: 20120124
  Transmission Date: 20120608
  Serious: Yes (Hospitalization, Other)
  Sender: FDA-Public Use
  Company Number: US-CELGENEUS-163-21880-11121315

PATIENT
  Sex: Female
  Weight: 57.658 kg

DRUGS (19)
  1. FUROSEMIDE [Concomitant]
     Dosage: 40 MILLIGRAM
     Route: 048
  2. ALDACTONE [Concomitant]
     Dosage: 5 MILLIGRAM
     Route: 065
  3. MEGACE [Concomitant]
     Route: 065
  4. XANAX [Concomitant]
     Route: 065
  5. CALCIUM CARBONATE [Concomitant]
     Route: 065
  6. ARANESP [Concomitant]
     Dosage: 100 MICROGRAM
     Route: 058
  7. RED BLOOD CELLS [Concomitant]
     Route: 041
  8. FOLIC ACID [Concomitant]
     Dosage: 1 MILLIGRAM
     Route: 048
  9. FUROSEMIDE [Concomitant]
     Indication: HYPERTENSION
  10. PLAVIX [Concomitant]
     Indication: CORONARY ARTERY DISEASE
     Dosage: 75 MILLIGRAM
     Route: 048
  11. METOPROLOL TARTRATE [Concomitant]
     Dosage: 100 MILLIGRAM
     Route: 065
  12. LYRICA [Concomitant]
     Dosage: 5 MILLIGRAM
     Route: 065
  13. REVLIMID [Suspect]
     Indication: MYELODYSPLASTIC SYNDROME
     Dosage: 5 MILLIGRAM
     Route: 048
     Dates: start: 20111017, end: 20111206
  14. ASPIRIN [Concomitant]
     Indication: CORONARY ARTERY DISEASE
     Dosage: 5 MILLIGRAM
     Route: 065
  15. ADVAIR DISKUS 100/50 [Concomitant]
     Route: 065
  16. FUROSEMIDE [Concomitant]
     Indication: CORONARY ARTERY DISEASE
  17. TRICOR [Concomitant]
     Route: 065
  18. PEPCID [Concomitant]
     Route: 065
  19. NORVASC [Concomitant]
     Indication: HYPERTENSION
     Dosage: 5 MILLIGRAM
     Route: 065

REACTIONS (4)
  - GAIT DISTURBANCE [None]
  - HAEMOGLOBIN DECREASED [None]
  - FALL [None]
  - WHITE BLOOD CELL COUNT DECREASED [None]
